FAERS Safety Report 9804233 (Version 1)
Quarter: 2014Q1

REPORT INFORMATION
  Report Type: Report from Study
  Country: US (occurrence: US)
  Receive Date: 20140108
  Receipt Date: 20140108
  Transmission Date: 20141002
  Serious: Yes (Other)
  Sender: FDA-Public Use
  Company Number: US-ROCHE-1330891

PATIENT
  Age: 79 Year
  Sex: Female

DRUGS (3)
  1. VISMODEGIB [Suspect]
     Indication: SMALL CELL LUNG CANCER
     Dosage: DATE OF LAST DOSE PRIOR TO SAE: 08/NOV/2010
     Route: 048
     Dates: start: 20100927
  2. ETOPOSIDE [Suspect]
     Indication: SMALL CELL LUNG CANCER
     Route: 042
  3. CISPLATIN [Suspect]
     Indication: SMALL CELL LUNG CANCER
     Route: 042

REACTIONS (1)
  - Dermatitis acneiform [Unknown]
